FAERS Safety Report 5871354-4 (Version None)
Quarter: 2008Q3

REPORT INFORMATION
  Report Type: 
  Country: None (occurrence: None)
  Receive Date: 20080902
  Receipt Date: 20080710
  Transmission Date: 20090109
  Serious: Yes (Hospitalization)
  Sender: FDA-Public Use
  Company Number: 2008S1006821

PATIENT
  Age: 80 Year
  Sex: Female

DRUGS (4)
  1. PHOSPHOSODA FLAVOR NOT SPECIFIED (SODIUM PHOSPHATE DIBASIC/SODIUM PHSP [Suspect]
     Indication: BOWEL PREPARATION
     Dosage: 45;ML;169;PO;X1
     Route: 048
     Dates: start: 20080211, end: 20080211
  2. PHOSPHOSODA FLAVOR NOT SPECIFIED (SODIUM PHOSPHATE DIBASIC/SODIUM PHSP [Suspect]
     Indication: BOWEL PREPARATION
     Dosage: 45;ML;169;PO;X1
     Route: 048
     Dates: start: 20080211, end: 20080212
  3. VERAPAMIL HYDROCHLORIDE [Concomitant]
  4. NICORANDIL (NICORANDIL) [Concomitant]

REACTIONS (3)
  - DEHYDRATION [None]
  - EMBOLISM [None]
  - PERIPHERAL ISCHAEMIA [None]
